FAERS Safety Report 18319230 (Version 1)
Quarter: 2020Q3

REPORT INFORMATION
  Report Type: Spontaneous
  Country: JP (occurrence: JP)
  Receive Date: 20200928
  Receipt Date: 20200928
  Transmission Date: 20201103
  Serious: Yes (Other)
  Sender: FDA-Public Use
  Company Number: NVSJ2020JP009168

PATIENT
  Age: 58 Year
  Sex: Female

DRUGS (1)
  1. VOLTAREN SUP [Suspect]
     Active Substance: DICLOFENAC SODIUM
     Indication: PRODUCT USED FOR UNKNOWN INDICATION
     Dosage: 50 MG
     Route: 054
     Dates: start: 201909, end: 201909

REACTIONS (1)
  - Drug eruption [Unknown]
